FAERS Safety Report 7129437-7 (Version None)
Quarter: 2010Q4

REPORT INFORMATION
  Report Type: 
  Country: None (occurrence: None)
  Receive Date: 20101130
  Receipt Date: 20101101
  Transmission Date: 20110411
  Serious: Yes (Hospitalization)
  Sender: FDA-Public Use
  Company Number: JP-PFIZER INC-JP-WYE-H17745410

PATIENT
  Age: 76 Year
  Sex: Male

DRUGS (10)
  1. ANCARON [Suspect]
     Indication: ATRIAL FIBRILLATION
     Dosage: 100 MG, DAILY
     Route: 048
     Dates: start: 20100410, end: 20100415
  2. ANCARON [Suspect]
     Indication: VENTRICULAR TACHYCARDIA
     Dosage: 100 MG, 2X/DAY
     Route: 048
     Dates: start: 20100416, end: 20100423
  3. ANCARON [Suspect]
     Dosage: 100 MG, DAILY
     Route: 048
     Dates: start: 20100424, end: 20100817
  4. ALLOPURINOL [Concomitant]
     Dosage: UNK
     Dates: start: 20090227
  5. PROTECADIN [Concomitant]
     Dosage: UNK
     Dates: start: 20090418
  6. MICARDIS [Concomitant]
     Dosage: UNK
     Dates: start: 20090220
  7. COROHERSER [Concomitant]
     Dosage: UNK
     Dates: start: 20100410
  8. TORASEMIDE [Concomitant]
     Dosage: UNK
     Dates: start: 20100303
  9. ASPIRIN [Concomitant]
     Dosage: UNK
     Route: 065
     Dates: start: 20100415
  10. WARFARIN [Concomitant]
     Dosage: UNK
     Route: 065
     Dates: start: 20090220

REACTIONS (1)
  - INTERSTITIAL LUNG DISEASE [None]
